FAERS Safety Report 9817478 (Version 2)
Quarter: 2014Q1

REPORT INFORMATION
  Report Type: Spontaneous
  Country: US (occurrence: US)
  Receive Date: 20140115
  Receipt Date: 20140213
  Transmission Date: 20141002
  Serious: No
  Sender: FDA-Public Use
  Company Number: US-BIOGENIDEC-2014BI003587

PATIENT
  Sex: Female

DRUGS (1)
  1. AVONEX [Suspect]
     Indication: MULTIPLE SCLEROSIS
     Route: 030
     Dates: start: 20020227, end: 201312

REACTIONS (9)
  - Tearfulness [Unknown]
  - Agitation [Unknown]
  - Social avoidant behaviour [Unknown]
  - Somnolence [Unknown]
  - Depression [Unknown]
  - Memory impairment [Not Recovered/Not Resolved]
  - Atrophy [Not Recovered/Not Resolved]
  - Drug ineffective [Recovered/Resolved]
  - Injection site pain [Recovered/Resolved]
